FAERS Safety Report 8406296-3 (Version None)
Quarter: 2012Q2

REPORT INFORMATION
  Report Type: 
  Country: None (occurrence: None)
  Receive Date: 20120604
  Receipt Date: 20120528
  Transmission Date: 20120825
  Serious: Yes (Hospitalization, Other)
  Sender: FDA-Public Use
  Company Number: PHHY2010JP59427

PATIENT
  Sex: Female

DRUGS (21)
  1. CLOZARIL [Suspect]
     Dosage: 50 MG, UNK
     Route: 048
     Dates: start: 20100829, end: 20100831
  2. SOFMIN AMEL [Concomitant]
     Dosage: UNK UKN, UNK
     Route: 048
  3. RISPERDAL [Concomitant]
     Dosage: 1 MG, UNK
     Route: 048
  4. SENNOSIDE [Concomitant]
     Indication: SCHIZOPHRENIA
     Dosage: 24 MG, UNK
     Route: 048
     Dates: start: 20100825, end: 20100905
  5. DEPAKENE [Concomitant]
     Indication: SCHIZOPHRENIA
     Dosage: 800 MG, DAILY
     Route: 048
     Dates: start: 20100701
  6. CLOZARIL [Suspect]
     Dosage: 25 MG, UNK
     Route: 048
     Dates: start: 20100826, end: 20100828
  7. DEPAKENE [Concomitant]
     Dosage: 600 MG
     Route: 048
     Dates: start: 20100903
  8. SELBEX [Concomitant]
     Dosage: 150 MG, UNK
     Route: 048
     Dates: start: 20100906, end: 20100909
  9. RISPERDAL [Concomitant]
     Dosage: 2 MG, UNK
     Route: 048
     Dates: start: 20100831
  10. CLOZARIL [Suspect]
     Dosage: 125 MG, UNK
     Route: 048
     Dates: start: 20100905, end: 20100905
  11. DEPAKENE [Concomitant]
     Dosage: 400 MG
     Route: 048
     Dates: end: 20100909
  12. ROCEPHIN [Concomitant]
     Dosage: 2 G, UNK
     Route: 042
     Dates: start: 20100906, end: 20100908
  13. CLOZARIL [Suspect]
     Dosage: 75 MG, UNK
     Route: 048
     Dates: start: 20100901, end: 20100902
  14. CLOZARIL [Suspect]
     Dosage: 75 MG, UNK
     Route: 048
     Dates: start: 20100908, end: 20100908
  15. HALOPERIDOL [Concomitant]
     Dosage: UNK UKN, UNK
  16. AKINETON [Concomitant]
     Indication: SCHIZOPHRENIA
     Dosage: 4 MG, UNK
     Route: 048
     Dates: start: 20100825
  17. AKINETON [Concomitant]
     Dosage: 2 MG, UNK
     Route: 048
     Dates: end: 20100910
  18. CLOZARIL [Suspect]
     Indication: SCHIZOPHRENIA
     Dosage: 12.5 MG, UNK
     Route: 048
     Dates: start: 20100825, end: 20100825
  19. CLOZARIL [Suspect]
     Dosage: 50 MG, UNK
     Route: 048
     Dates: start: 20100906, end: 20100906
  20. CLOZARIL [Suspect]
     Dosage: 25 MG, UNK
     Route: 048
     Dates: start: 20100909, end: 20100909
  21. CLOZARIL [Suspect]
     Dosage: 100 MG, UNK
     Route: 048
     Dates: start: 20100903, end: 20100904

REACTIONS (17)
  - WHITE BLOOD CELL COUNT DECREASED [None]
  - ERYTHEMA [None]
  - PLATELET COUNT DECREASED [None]
  - PYREXIA [None]
  - C-REACTIVE PROTEIN INCREASED [None]
  - HEART RATE INCREASED [None]
  - CHILLS [None]
  - HEADACHE [None]
  - INFECTION [None]
  - PYELONEPHRITIS [None]
  - DRUG ERUPTION [None]
  - LYMPHOCYTE PERCENTAGE DECREASED [None]
  - NEUTROPHIL PERCENTAGE DECREASED [None]
  - PNEUMONIA [None]
  - COUGH [None]
  - LIVER DISORDER [None]
  - ANAEMIA [None]
